FAERS Safety Report 18909467 (Version 1)
Quarter: 2021Q1

REPORT INFORMATION
  Report Type: Spontaneous
  Country: US (occurrence: US)
  Receive Date: 20210218
  Receipt Date: 20210218
  Transmission Date: 20210420
  Serious: No
  Sender: FDA-Public Use
  Company Number: None

PATIENT
  Age: 67 Year
  Sex: Female

DRUGS (16)
  1. NUCYNTA [Concomitant]
     Active Substance: TAPENTADOL HYDROCHLORIDE
  2. FERROUS SULF [Concomitant]
     Active Substance: FERROUS SULFATE
  3. APAP/CODEINE [Concomitant]
     Active Substance: ACETAMINOPHEN\CODEINE PHOSPHATE
  4. FUROSEMIDE. [Concomitant]
     Active Substance: FUROSEMIDE
  5. SPIRONOLACT [Concomitant]
     Active Substance: SPIRONOLACTONE
  6. POT CHLORIDE [Concomitant]
     Active Substance: POTASSIUM CHLORIDE
  7. CEPHALEXIN. [Concomitant]
     Active Substance: CEPHALEXIN
  8. JARDIANCE [Concomitant]
     Active Substance: EMPAGLIFLOZIN
  9. GLIPIZIDE. [Concomitant]
     Active Substance: GLIPIZIDE
  10. NADOLOL. [Concomitant]
     Active Substance: NADOLOL
  11. ALPRAZOLAM. [Concomitant]
     Active Substance: ALPRAZOLAM
  12. CHLORHEX [Concomitant]
     Active Substance: CHLORHEXIDINE GLUCONATE
  13. TRIAMCINOLON [Concomitant]
  14. PROMACTA [Suspect]
     Active Substance: ELTROMBOPAG OLAMINE
     Indication: THROMBOCYTOPENIA
     Route: 048
     Dates: start: 20201203
  15. METFORMIN [Concomitant]
     Active Substance: METFORMIN HYDROCHLORIDE
  16. MELOXICAM. [Concomitant]
     Active Substance: MELOXICAM

REACTIONS (1)
  - Peripheral swelling [None]
